FAERS Safety Report 24612861 (Version 1)
Quarter: 2024Q4

REPORT INFORMATION
  Report Type: Spontaneous
  Country: US (occurrence: None)
  Receive Date: 20241112
  Receipt Date: 20241112
  Transmission Date: 20250115
  Serious: No
  Sender: Public
  Company Number: None

PATIENT
  Age: 45 Year
  Sex: Female
  Weight: 102 kg

DRUGS (3)
  1. RIVAROXABAN [Suspect]
     Active Substance: RIVAROXABAN
     Indication: Atrial fibrillation
     Dosage: FREQUENCY : DAILY;?
     Route: 048
     Dates: start: 20240401, end: 20240815
  2. RIVAROXABAN [Suspect]
     Active Substance: RIVAROXABAN
     Indication: Mitral valve replacement
  3. WARFARIN [Suspect]
     Active Substance: WARFARIN

REACTIONS (8)
  - Pulmonary embolism [None]
  - Deep vein thrombosis [None]
  - Haemorrhage [None]
  - Cavernous sinus thrombosis [None]
  - Treatment noncompliance [None]
  - Therapy interrupted [None]
  - Embolism venous [None]
  - Symptom recurrence [None]

NARRATIVE: CASE EVENT DATE: 20240814
